FAERS Safety Report 6928316-5 (Version None)
Quarter: 2010Q3

REPORT INFORMATION
  Report Type: 
  Country: None (occurrence: None)
  Receive Date: 20100817
  Receipt Date: 20100804
  Transmission Date: 20110219
  Serious: Yes (Other)
  Sender: FDA-Public Use
  Company Number: US-ROCHE-720757

PATIENT
  Sex: Male
  Weight: 58 kg

DRUGS (6)
  1. BEVACIZUMAB [Suspect]
     Dosage: LAST DOSE PRIOR TO SAE: 05 APRIL 2010; REGIMEN 1.
     Route: 042
     Dates: start: 20100104, end: 20100424
  2. PACLITAXEL [Suspect]
     Dosage: LAST DOSE PRIOR TO SAE: 15 MARCH 2010.
     Route: 042
     Dates: start: 20100104, end: 20100424
  3. CARBOPLATIN [Suspect]
     Dosage: TOTAL DAILY DOSE:  6 D/S AND 6 AUC.  LAST DOSE PRIOR TO SAE: 15 MARCH 2010.
     Route: 042
     Dates: start: 20100104, end: 20100424
  4. METHADONE HCL [Concomitant]
  5. HYDROMORPHONE [Concomitant]
     Dates: start: 20091230
  6. VICODIN [Concomitant]
     Dates: start: 20091221

REACTIONS (1)
  - HEPATITIS C [None]
